FAERS Safety Report 15387380 (Version 3)
Quarter: 2020Q3

REPORT INFORMATION
  Report Type: Report from Study
  Country: CN (occurrence: CN)
  Receive Date: 20180914
  Receipt Date: 20190906
  Transmission Date: 20201105
  Serious: Yes (Hospitalization)
  Sender: FDA-Public Use
  Company Number: CN-BAYER-2018-060414

PATIENT
  Age: 45 Year
  Sex: Male
  Weight: 85 kg

DRUGS (9)
  1. COPANLISIB. [Suspect]
     Active Substance: COPANLISIB
     Indication: NON-HODGKIN^S LYMPHOMA RECURRENT
     Dosage: UNK
     Route: 042
  2. BENDAMUSTINE [Suspect]
     Active Substance: BENDAMUSTINE
     Indication: NON-HODGKIN^S LYMPHOMA RECURRENT
     Dosage: 90 MG/M2, UNK  (D1, D2)
     Route: 041
     Dates: start: 20180110, end: 20180613
  3. GLUCOBAY [Concomitant]
     Active Substance: ACARBOSE
     Indication: HYPERGLYCAEMIA
     Dosage: 150 MG, QD
     Route: 048
     Dates: start: 20180213
  4. COPANLISIB. [Suspect]
     Active Substance: COPANLISIB
     Indication: NON-HODGKIN^S LYMPHOMA RECURRENT
     Dosage: 60 MG, QD
     Route: 041
     Dates: start: 20180110, end: 20180829
  5. COPANLISIB. [Suspect]
     Active Substance: COPANLISIB
     Indication: NON-HODGKIN^S LYMPHOMA RECURRENT
     Dosage: DAY 1
     Route: 042
     Dates: start: 20180320, end: 20180320
  6. COPANLISIB. [Suspect]
     Active Substance: COPANLISIB
     Indication: NON-HODGKIN^S LYMPHOMA RECURRENT
     Dosage: 60 MG, QD (DAY 2)
     Route: 042
     Dates: start: 20180321, end: 20180321
  7. ENTECAVIR. [Concomitant]
     Active Substance: ENTECAVIR
     Indication: HEPATITIS B CORE ANTIBODY POSITIVE
     Dosage: 0.5 MG, QD
     Route: 048
     Dates: start: 20180206
  8. ACICLOVIR [Concomitant]
     Active Substance: ACYCLOVIR
     Indication: PROPHYLAXIS
     Dosage: 0.2 G, QD
     Route: 048
     Dates: start: 20180403
  9. RITUXIMAB. [Suspect]
     Active Substance: RITUXIMAB
     Indication: NON-HODGKIN^S LYMPHOMA RECURRENT
     Dosage: 375 MG/M2, UNK (D1)
     Route: 041
     Dates: start: 20180110, end: 20180612

REACTIONS (2)
  - Skin infection [Recovered/Resolved]
  - Cytomegalovirus infection [Recovered/Resolved]

NARRATIVE: CASE EVENT DATE: 20180319
